FAERS Safety Report 5153390-9 (Version None)
Quarter: 2006Q4

REPORT INFORMATION
  Report Type: 
  Country: None (occurrence: None)
  Receive Date: 20061113
  Receipt Date: 20061101
  Transmission Date: 20070319
  Serious: Yes (Hospitalization)
  Sender: FDA-Public Use
  Company Number: CAWYE368230OCT06

PATIENT
  Age: 61 Year
  Sex: Female

DRUGS (5)
  1. EFFEXOR XR [Suspect]
     Indication: DEPRESSION
     Dosage: 75 MG 1X PER 1 DAY
     Route: 048
     Dates: start: 20060501, end: 20061001
  2. TYLENOL W/ CODEINE NO. 3 [Concomitant]
  3. VASOTEC [Concomitant]
  4. TRAZODONE HCL [Concomitant]
  5. CALCIUM WITH VITAMIN D (CALCIUM PHOSPHATE/CALCIUM SODIUM LACTATE/ERGOC [Concomitant]

REACTIONS (10)
  - CONDITION AGGRAVATED [None]
  - DEPRESSION [None]
  - DRUG INEFFECTIVE [None]
  - EPISTAXIS [None]
  - INCREASED TENDENCY TO BRUISE [None]
  - MOUTH HAEMORRHAGE [None]
  - ORAL PUSTULE [None]
  - PLATELET COUNT DECREASED [None]
  - POSTMENOPAUSAL HAEMORRHAGE [None]
  - RECTAL HAEMORRHAGE [None]
